FAERS Safety Report 13926873 (Version 1)
Quarter: 2017Q3

REPORT INFORMATION
  Report Type: Spontaneous
  Country: SG (occurrence: SG)
  Receive Date: 20170831
  Receipt Date: 20170831
  Transmission Date: 20171127
  Serious: Yes (Death)
  Sender: FDA-Public Use
  Company Number: SG-ABBVIE-17P-141-2087823-00

PATIENT
  Age: 73 Year
  Sex: Female

DRUGS (15)
  1. CLONAZEPAM. [Concomitant]
     Active Substance: CLONAZEPAM
     Indication: PRODUCT USED FOR UNKNOWN INDICATION
  2. DIAZEPAM. [Concomitant]
     Active Substance: DIAZEPAM
     Indication: PRODUCT USED FOR UNKNOWN INDICATION
  3. AUGMENTIN [Concomitant]
     Active Substance: AMOXICILLIN\CLAVULANATE POTASSIUM
     Indication: PRODUCT USED FOR UNKNOWN INDICATION
     Dates: start: 20170425, end: 20170504
  4. EPILIM [Suspect]
     Active Substance: VALPROATE SODIUM
     Route: 048
     Dates: start: 20170506
  5. KEPPRA [Suspect]
     Active Substance: LEVETIRACETAM
     Dosage: NOS
     Route: 042
     Dates: end: 20170516
  6. PHENYTOIN. [Suspect]
     Active Substance: PHENYTOIN
     Indication: SEIZURE
     Dosage: NOS
     Route: 042
     Dates: start: 20170425, end: 20170504
  7. EPILIM [Suspect]
     Active Substance: VALPROATE SODIUM
     Indication: SEIZURE
     Dosage: NOS
     Route: 042
     Dates: start: 20170425, end: 20170504
  8. KEPPRA [Suspect]
     Active Substance: LEVETIRACETAM
     Route: 048
     Dates: start: 20170506
  9. PHENYTOIN. [Suspect]
     Active Substance: PHENYTOIN
     Dosage: NOS
     Route: 048
     Dates: start: 20170506
  10. EPILIM [Suspect]
     Active Substance: VALPROATE SODIUM
     Dosage: NOS
     Route: 042
     Dates: start: 20170504, end: 20170506
  11. KEPPRA [Suspect]
     Active Substance: LEVETIRACETAM
     Indication: SEIZURE
     Route: 042
     Dates: start: 20170504, end: 20170506
  12. DOXYCYCLINE. [Concomitant]
     Active Substance: DOXYCYCLINE
     Indication: PRODUCT USED FOR UNKNOWN INDICATION
     Dates: start: 20170425, end: 20170504
  13. ESOMEPRAZOLE [Concomitant]
     Active Substance: ESOMEPRAZOLE
     Indication: PRODUCT USED FOR UNKNOWN INDICATION
     Dates: start: 20170513
  14. PHENYTOIN. [Suspect]
     Active Substance: PHENYTOIN
     Dosage: NOS
     Route: 042
  15. PIPERACILLIN/TAZOBACTAM [Suspect]
     Active Substance: PIPERACILLIN SODIUM\TAZOBACTAM SODIUM
     Indication: PYREXIA
     Dosage: ONCE
     Route: 065
     Dates: start: 20170513, end: 20170513

REACTIONS (3)
  - Blister [Fatal]
  - Toxic epidermal necrolysis [Fatal]
  - Rash generalised [Fatal]

NARRATIVE: CASE EVENT DATE: 20170513
